FAERS Safety Report 9493153 (Version 2)
Quarter: 2013Q3

REPORT INFORMATION
  Report Type: Spontaneous
  Country: CA (occurrence: CA)
  Receive Date: 20130902
  Receipt Date: 20130911
  Transmission Date: 20140515
  Serious: Yes (Other)
  Sender: FDA-Public Use
  Company Number: CA-JNJFOC-20130810647

PATIENT
  Age: 58 Year
  Sex: Female
  Weight: 63.5 kg

DRUGS (1)
  1. BENADRYL RS ALLERGY 25MG CAPLETS [Suspect]
     Indication: ALLERGY TO ARTHROPOD STING
     Dosage: 1-2 CAPLETS
     Route: 048
     Dates: start: 20130812, end: 20130814

REACTIONS (8)
  - Food allergy [Recovering/Resolving]
  - Local swelling [Not Recovered/Not Resolved]
  - Arthralgia [Recovering/Resolving]
  - Off label use [Unknown]
  - Urticaria [Recovering/Resolving]
  - Diarrhoea [Not Recovered/Not Resolved]
  - Dyspepsia [Not Recovered/Not Resolved]
  - Headache [Not Recovered/Not Resolved]
